FAERS Safety Report 10436103 (Version 1)
Quarter: 2014Q3

REPORT INFORMATION
  Report Type: Spontaneous
  Country: US (occurrence: None)
  Receive Date: 20140904
  Receipt Date: 20140904
  Transmission Date: 20150326
  Serious: Yes (Life-Threatening, Other)
  Sender: FDA-Public Use
  Company Number: 24973 SE # 1559

PATIENT
  Age: 6 Month
  Sex: Male

DRUGS (2)
  1. ORAJEL [Concomitant]
     Active Substance: ALLANTOIN\BENZOCAINE\CAMPHOR (NATURAL)\DIMETHICONE\MENTHOL
  2. BABY TEETHING [Suspect]
     Active Substance: ARABICA COFFEE BEAN\ATROPA BELLADONNA\CALCIUM PHOSPHATE\CHAMOMILE
     Indication: TEETHING
     Route: 060

REACTIONS (5)
  - Convulsion [None]
  - Dyspnoea [None]
  - Unresponsive to stimuli [None]
  - Feeling abnormal [None]
  - Tremor [None]

NARRATIVE: CASE EVENT DATE: 201406
